FAERS Safety Report 25957575 (Version 2)
Quarter: 2025Q4

REPORT INFORMATION
  Report Type: Spontaneous
  Country: BR (occurrence: BR)
  Receive Date: 20251024
  Receipt Date: 20251030
  Transmission Date: 20260118
  Serious: Yes (Other)
  Sender: ABBVIE
  Company Number: BR-ABBVIE-6516732

PATIENT
  Sex: Female

DRUGS (1)
  1. RINVOQ [Suspect]
     Active Substance: UPADACITINIB
     Indication: Dermatitis atopic
     Route: 048
     Dates: start: 202504

REACTIONS (4)
  - Chondrosarcoma [Unknown]
  - Pain in extremity [Unknown]
  - Osteochondroma [Unknown]
  - Enchondromatosis [Unknown]

NARRATIVE: CASE EVENT DATE: 20250101
